FAERS Safety Report 8219561-X (Version None)
Quarter: 2012Q1

REPORT INFORMATION
  Report Type: 
  Country: None (occurrence: None)
  Receive Date: 20120319
  Receipt Date: 20120313
  Transmission Date: 20120608
  Serious: Yes (Death)
  Sender: FDA-Public Use
  Company Number: MK-BRISTOL-MYERS SQUIBB COMPANY-16380362

PATIENT

DRUGS (1)
  1. SPRYCEL [Suspect]
     Dosage: 50MG TABS 1 X 60,ONE MONTH AGO

REACTIONS (1)
  - DEATH [None]
